FAERS Safety Report 4387870-0 (Version None)
Quarter: 2004Q2

REPORT INFORMATION
  Report Type: 
  Country: None (occurrence: None)
  Receive Date: 20040630
  Receipt Date: 20040624
  Transmission Date: 20050107
  Serious: Yes (Other)
  Sender: FDA-Public Use
  Company Number: PHBS2004US08444

PATIENT
  Age: 11 Month
  Sex: Male
  Weight: 4 kg

DRUGS (2)
  1. DISODIUM PAMIDRONATE [Suspect]
     Indication: OSTEOGENESIS IMPERFECTA
     Dosage: 0.125 MG/KG/D
  2. DISODIUM PAMIDRONATE [Suspect]
     Dosage: 0.25 MG/KG/D

REACTIONS (6)
  - CONDITION AGGRAVATED [None]
  - HEART RATE INCREASED [None]
  - OXYGEN SATURATION DECREASED [None]
  - PYREXIA [None]
  - RESPIRATORY DISTRESS [None]
  - RESPIRATORY RATE INCREASED [None]
